FAERS Safety Report 8918822 (Version 1)
Quarter: 2012Q4

REPORT INFORMATION
  Report Type: Spontaneous
  Country: US (occurrence: None)
  Receive Date: 20121115
  Receipt Date: 20121115
  Transmission Date: 20130627
  Serious: Yes (Other)
  Sender: FDA-Public Use
  Company Number: None

PATIENT
  Age: 22 Year
  Sex: Female
  Weight: 54.43 kg

DRUGS (1)
  1. FLUCONAZOLE [Suspect]
     Indication: GASTROINTESTINAL CANDIDIASIS
     Dosage: 100 mg SID po
     Route: 048
     Dates: start: 20121106, end: 20121113

REACTIONS (4)
  - Nausea [None]
  - Abdominal pain [None]
  - Abdominal pain upper [None]
  - Chest pain [None]
